FAERS Safety Report 24690708 (Version 3)
Quarter: 2025Q2

REPORT INFORMATION
  Report Type: Spontaneous
  Country: US (occurrence: US)
  Receive Date: 20241203
  Receipt Date: 20250606
  Transmission Date: 20250717
  Serious: No
  Sender: NOVEN
  Company Number: US-NOVEN PHARMACEUTICALS, INC.-2023-NOV-US001295

PATIENT
  Sex: Female

DRUGS (3)
  1. ESTRADIOL [Suspect]
     Active Substance: ESTRADIOL
     Indication: Blood oestrogen abnormal
     Route: 062
  2. ESTRADIOL [Suspect]
     Active Substance: ESTRADIOL
     Route: 062
  3. TESTOSTERONE [Concomitant]
     Active Substance: TESTOSTERONE
     Indication: Blood testosterone abnormal
     Route: 065

REACTIONS (1)
  - Product ineffective [Unknown]
